FAERS Safety Report 10546800 (Version 1)
Quarter: 2014Q4

REPORT INFORMATION
  Report Type: Report from Study
  Country: US (occurrence: US)
  Receive Date: 20141027
  Receipt Date: 20141027
  Transmission Date: 20150529
  Serious: No
  Sender: FDA-Public Use
  Company Number: US-ABBVIE-14P-163-1265318-00

PATIENT
  Age: 39 Year
  Sex: Female

DRUGS (4)
  1. NORETHINDRONE ACETATE. [Concomitant]
     Active Substance: NORETHINDRONE ACETATE
     Indication: PRODUCT USED FOR UNKNOWN INDICATION
     Dates: start: 20140625, end: 20140715
  2. TRAMADOL [Concomitant]
     Active Substance: TRAMADOL
     Indication: PRODUCT USED FOR UNKNOWN INDICATION
  3. LUPRON DEPOT [Suspect]
     Active Substance: LEUPROLIDE ACETATE
     Indication: ENDOMETRIOSIS
     Dates: start: 20140623
  4. ESTRADIOL. [Concomitant]
     Active Substance: ESTRADIOL
     Indication: HOT FLUSH
     Dosage: AS NEEDED

REACTIONS (3)
  - Anxiety [Not Recovered/Not Resolved]
  - Cystitis [Not Recovered/Not Resolved]
  - Pelvic pain [Not Recovered/Not Resolved]

NARRATIVE: CASE EVENT DATE: 201406
